FAERS Safety Report 5794205-5 (Version None)
Quarter: 2008Q2

REPORT INFORMATION
  Report Type: 
  Country: None (occurrence: None)
  Receive Date: 20080627
  Receipt Date: 20080616
  Transmission Date: 20081010
  Serious: Yes (Life-Threatening)
  Sender: FDA-Public Use
  Company Number: FR-PFIZER INC-2008050950

PATIENT
  Sex: Female

DRUGS (11)
  1. ALDACTONE [Suspect]
     Indication: CARDIAC FAILURE
     Dates: start: 20080401, end: 20080429
  2. GLUCOVANCE [Interacting]
     Indication: TYPE 2 DIABETES MELLITUS
     Dosage: TEXT:TDD:6DF-FREQ:2DF TID EVERY DAY
     Route: 048
  3. ODRIK [Interacting]
     Indication: CARDIAC FAILURE
     Dates: start: 20080401, end: 20080429
  4. BISOPROLOL FUMARATE [Concomitant]
  5. LASIX [Concomitant]
  6. POTASSIUM CHLORIDE [Concomitant]
  7. ZOCOR [Concomitant]
  8. DIGOXIN [Concomitant]
  9. PREVISCAN [Concomitant]
  10. LEVOTHYROXINE SODIUM [Concomitant]
  11. STRUCTUM [Concomitant]

REACTIONS (2)
  - DRUG INTERACTION [None]
  - LACTIC ACIDOSIS [None]
